FAERS Safety Report 12042492 (Version 2)
Quarter: 2016Q3

REPORT INFORMATION
  Report Type: Spontaneous
  Country: US (occurrence: US)
  Receive Date: 20160208
  Receipt Date: 20160809
  Transmission Date: 20161109
  Serious: Yes (Hospitalization, Other)
  Sender: FDA-Public Use
  Company Number: US-PFIZER INC-2016070230

PATIENT
  Age: 46 Year
  Sex: Male

DRUGS (11)
  1. ANDRODERM [Suspect]
     Active Substance: TESTOSTERONE
     Dosage: UNK
     Dates: start: 2012, end: 2013
  2. FORTESTA [Suspect]
     Active Substance: TESTOSTERONE
     Indication: HORMONE REPLACEMENT THERAPY
     Dosage: UNK
     Dates: start: 2012, end: 2013
  3. ANDROGEL [Suspect]
     Active Substance: TESTOSTERONE
     Indication: HORMONE REPLACEMENT THERAPY
     Dosage: UNK, 1X/DAY
     Dates: start: 2006, end: 2011
  4. STRIANT [Suspect]
     Active Substance: TESTOSTERONE
     Indication: HORMONE REPLACEMENT THERAPY
     Dosage: UNK
     Dates: start: 2012, end: 2013
  5. DELATESTRYL [Suspect]
     Active Substance: TESTOSTERONE ENANTHATE
     Indication: HORMONE REPLACEMENT THERAPY
     Dosage: UNK
     Dates: start: 2012, end: 2013
  6. ANDRODERM [Suspect]
     Active Substance: TESTOSTERONE
     Indication: HORMONE REPLACEMENT THERAPY
     Dosage: UNK, 2X/DAY
     Dates: start: 2006, end: 2011
  7. TESTOPEL [Suspect]
     Active Substance: TESTOSTERONE
     Indication: HORMONE REPLACEMENT THERAPY
     Dosage: UNK
     Dates: start: 2012, end: 2013
  8. DEPO-TESTOSTERONE [Suspect]
     Active Substance: TESTOSTERONE CYPIONATE
     Indication: HORMONE REPLACEMENT THERAPY
     Dosage: UNK
     Dates: start: 2012, end: 2013
  9. TESTIM [Suspect]
     Active Substance: TESTOSTERONE
     Indication: HORMONE REPLACEMENT THERAPY
     Dosage: UNK
     Dates: start: 2012, end: 2013
  10. AXIRON [Suspect]
     Active Substance: TESTOSTERONE
     Indication: HORMONE REPLACEMENT THERAPY
     Dosage: UNK
     Dates: start: 2012, end: 2013
  11. ANDROGEL [Suspect]
     Active Substance: TESTOSTERONE
     Dosage: UNK
     Dates: start: 2012, end: 2013

REACTIONS (6)
  - Cardiovascular disorder [Unknown]
  - Pulmonary thrombosis [Not Recovered/Not Resolved]
  - Seizure [Unknown]
  - Pulmonary embolism [Unknown]
  - Renal failure [Unknown]
  - Nerve injury [Not Recovered/Not Resolved]

NARRATIVE: CASE EVENT DATE: 2006
